FAERS Safety Report 4273085-3 (Version None)
Quarter: 2004Q1

REPORT INFORMATION
  Report Type: 
  Country: None (occurrence: None)
  Receive Date: 20040116
  Receipt Date: 20031202
  Transmission Date: 20041129
  Serious: Yes (Death, Life-Threatening, Hospitalization)
  Sender: FDA-Public Use
  Company Number: PHHO2003DE15481

PATIENT
  Age: 69 Year
  Sex: Male
  Weight: 93 kg

DRUGS (4)
  1. ZOLEDRONIC ACID [Suspect]
     Indication: METASTASES TO BONE
     Dosage: 4 MG
     Route: 042
     Dates: start: 20030908
  2. MITOXANTRONE [Concomitant]
     Indication: PROSTATE CANCER
     Dosage: 12 MG/M2, ONCE/SINGLE
     Dates: start: 20031023, end: 20031023
  3. MITOXANTRONE [Concomitant]
     Dosage: 12 MG/M2, ONCE/SINGLE
     Dates: start: 20031113, end: 20031113
  4. PREDNISOLONE [Suspect]
     Dosage: UNK, UNK
     Dates: start: 20031023, end: 20031201

REACTIONS (9)
  - CARDIAC ARREST [None]
  - COR PULMONALE [None]
  - DRUG INTERACTION [None]
  - ELECTROCARDIOGRAM ABNORMAL [None]
  - LYMPHOEDEMA [None]
  - MALIGNANT NEOPLASM PROGRESSION [None]
  - METASTATIC NEOPLASM [None]
  - PROSTATE CANCER [None]
  - PULMONARY EMBOLISM [None]
